FAERS Safety Report 24833573 (Version 4)
Quarter: 2025Q3

REPORT INFORMATION
  Report Type: Spontaneous
  Country: US (occurrence: US)
  Receive Date: 20250112
  Receipt Date: 20250707
  Transmission Date: 20251020
  Serious: No
  Sender: SANOFI AVENTIS
  Company Number: US-SA-2025SA009460

PATIENT
  Sex: Female

DRUGS (12)
  1. DUPIXENT [Suspect]
     Active Substance: DUPILUMAB
     Indication: Dermatitis atopic
     Dosage: 300 MG QOW
     Route: 058
     Dates: start: 2024
  2. DUPIXENT [Suspect]
     Active Substance: DUPILUMAB
     Dosage: 300 MG, QOW
     Route: 058
     Dates: start: 202501
  3. CALCIUM [Concomitant]
     Active Substance: CALCIUM
  4. COENZYME Q10 [Concomitant]
     Active Substance: DIETARY SUPPLEMENT\UBIDECARENONE
  5. FLAXSEED [Concomitant]
     Active Substance: FLAX SEED
  6. LUTEIN [Concomitant]
     Active Substance: LUTEIN
  7. VITAMINS [Concomitant]
     Active Substance: VITAMINS
  8. OMEGA 3 [Concomitant]
     Active Substance: CAPSAICIN
  9. DIETARY SUPPLEMENT [Concomitant]
     Active Substance: DIETARY SUPPLEMENT
  10. PROBIOTICS NOS [Concomitant]
     Active Substance: PROBIOTICS NOS
  11. ZYRTEC [Concomitant]
     Active Substance: CETIRIZINE HYDROCHLORIDE
  12. DEXILANT [Concomitant]
     Active Substance: DEXLANSOPRAZOLE

REACTIONS (15)
  - Pruritus [Not Recovered/Not Resolved]
  - Skin haemorrhage [Not Recovered/Not Resolved]
  - Brain fog [Not Recovered/Not Resolved]
  - Scar [Not Recovered/Not Resolved]
  - Ocular hyperaemia [Not Recovered/Not Resolved]
  - Flatulence [Not Recovered/Not Resolved]
  - Alopecia [Not Recovered/Not Resolved]
  - Rebound effect [Not Recovered/Not Resolved]
  - Dry skin [Not Recovered/Not Resolved]
  - Rash [Not Recovered/Not Resolved]
  - Dry eye [Not Recovered/Not Resolved]
  - Rash [Not Recovered/Not Resolved]
  - Arthralgia [Not Recovered/Not Resolved]
  - Product dose omission in error [Unknown]
  - Product dose omission issue [Not Recovered/Not Resolved]
